FAERS Safety Report 5660216-3 (Version None)
Quarter: 2008Q1

REPORT INFORMATION
  Report Type: 
  Country: None (occurrence: None)
  Receive Date: 20080212
  Receipt Date: 20071211
  Transmission Date: 20080703
  Serious: Yes (Other)
  Sender: FDA-Public Use
  Company Number: MC200700735

PATIENT
  Age: 62 Year
  Sex: Female
  Weight: 71.7 kg

DRUGS (4)
  1. ANGIOMAX [Suspect]
     Indication: PERCUTANEOUS CORONARY INTERVENTION
     Dosage: 10.5 ML. SINGLE, IV BOLUS; 24.5 ML, HR, INTRAVENOUS
     Route: 040
     Dates: start: 20071210, end: 20071210
  2. ANGIOMAX [Suspect]
     Indication: PERCUTANEOUS CORONARY INTERVENTION
     Dosage: 10.5 ML. SINGLE, IV BOLUS; 24.5 ML, HR, INTRAVENOUS
     Route: 040
     Dates: start: 20071210, end: 20071210
  3. ASPIRIN [Suspect]
     Indication: PERCUTANEOUS CORONARY INTERVENTION
     Dates: start: 20071210, end: 20071210
  4. PLAVIX [Concomitant]

REACTIONS (1)
  - CORONARY ARTERY THROMBOSIS [None]
